FAERS Safety Report 15745222 (Version 2)
Quarter: 2018Q4

REPORT INFORMATION
  Report Type: Spontaneous
  Country: CH (occurrence: CH)
  Receive Date: 20181220
  Receipt Date: 20181226
  Transmission Date: 20190205
  Serious: Yes (Hospitalization, Other)
  Sender: FDA-Public Use
  Company Number: CH-PFIZER INC-2018516196

PATIENT
  Age: 74 Year
  Sex: Male
  Weight: 117 kg

DRUGS (9)
  1. VASCORD [AMLODIPINE BESILATE;OLMESARTAN MEDOXOMIL] [Concomitant]
     Dosage: UNK, DAILY
     Route: 048
  2. TORASEMID SANDOZ ECO [Concomitant]
     Active Substance: TORSEMIDE
     Dosage: 10 MG, 1X/DAY
     Route: 048
  3. XANAX [Suspect]
     Active Substance: ALPRAZOLAM
     Indication: DEPRESSION
     Dosage: 0.5 MG, 2X/DAY
     Route: 048
  4. PARONEX [Concomitant]
     Active Substance: PAROXETINE HYDROCHLORIDE
     Dosage: 0.5 DF, 1X/DAY
     Route: 048
  5. CORDARONE [Concomitant]
     Active Substance: AMIODARONE HYDROCHLORIDE
     Dosage: 200 MG, 1X/DAY
     Route: 048
  6. ATORVASTATIN PFIZER [Concomitant]
     Active Substance: ATORVASTATIN
     Dosage: 40 MG, 1X/DAY
     Route: 048
  7. METFORMIN [Concomitant]
     Active Substance: METFORMIN HYDROCHLORIDE
     Indication: TYPE 2 DIABETES MELLITUS
     Dosage: 850 MG, 2X/DAY
     Route: 048
  8. CONCOR [Concomitant]
     Active Substance: BISOPROLOL FUMARATE
     Dosage: 5 MG, 1X/DAY
     Route: 048
  9. QUETIAPIN SANDOZ [Concomitant]
     Active Substance: QUETIAPINE
     Dosage: 25 MG, 2X/DAY
     Route: 048

REACTIONS (15)
  - Depression [Unknown]
  - Diaphragmatic paralysis [Unknown]
  - Respiratory failure [Recovered/Resolved]
  - Drug abuse [Recovered/Resolved]
  - Hypotension [Unknown]
  - Atelectasis [Unknown]
  - Hypercapnia [Unknown]
  - Delirium [Unknown]
  - Altered state of consciousness [Recovered/Resolved]
  - Hallucination, visual [Unknown]
  - Dyspnoea [Unknown]
  - Cough [Unknown]
  - Confusional state [Recovered/Resolved]
  - Hallucination [Unknown]
  - Abnormal behaviour [Unknown]

NARRATIVE: CASE EVENT DATE: 20181122
